FAERS Safety Report 18068344 (Version 3)
Quarter: 2020Q3

REPORT INFORMATION
  Report Type: Spontaneous
  Country: JP (occurrence: JP)
  Receive Date: 20200725
  Receipt Date: 20200910
  Transmission Date: 20201103
  Serious: Yes (Hospitalization, Other)
  Sender: FDA-Public Use
  Company Number: JP-AMGEN-JPNSP2020118535

PATIENT
  Age: 48 Year
  Sex: Female
  Weight: 44.8 kg

DRUGS (50)
  1. NESP [Concomitant]
     Active Substance: DARBEPOETIN ALFA
     Dosage: 80 MUG, QW
     Route: 065
     Dates: start: 20180402, end: 20180402
  2. NESP [Concomitant]
     Active Substance: DARBEPOETIN ALFA
     Dosage: 100 MUG, QW
     Route: 065
     Dates: start: 20180409, end: 20180423
  3. NESP [Concomitant]
     Active Substance: DARBEPOETIN ALFA
     Dosage: 40 MUG, QW
     Route: 065
     Dates: start: 20180827, end: 20180917
  4. ROCALTROL [Concomitant]
     Active Substance: CALCITRIOL
     Dosage: 0.5 MICROGRAM
     Route: 065
     Dates: end: 20180122
  5. ROCALTROL [Concomitant]
     Active Substance: CALCITRIOL
     Dosage: 1 MICROGRAM, 2 TIMES/WK
     Route: 065
     Dates: start: 20180420, end: 20180702
  6. MIRCERA [Concomitant]
     Active Substance: METHOXY POLYETHYLENE GLYCOL-EPOETIN BETA
     Dosage: 250 MUG, Q4W
     Route: 065
     Dates: start: 20181205, end: 20190211
  7. MIRCERA [Concomitant]
     Active Substance: METHOXY POLYETHYLENE GLYCOL-EPOETIN BETA
     Dosage: 250 MUG, Q4W
     Route: 065
     Dates: start: 20190904, end: 20191209
  8. MIRCERA [Concomitant]
     Active Substance: METHOXY POLYETHYLENE GLYCOL-EPOETIN BETA
     Dosage: 150 MUG, Q4W
     Route: 065
     Dates: start: 20200210, end: 20200210
  9. NESP [Concomitant]
     Active Substance: DARBEPOETIN ALFA
     Dosage: 60 MUG, QW
     Route: 065
     Dates: start: 20180326, end: 20180326
  10. ROCALTROL [Concomitant]
     Active Substance: CALCITRIOL
     Dosage: 0.5 MICROGRAM, QWK
     Route: 065
     Dates: start: 20180124, end: 20180226
  11. ROCALTROL [Concomitant]
     Active Substance: CALCITRIOL
     Dosage: 0.5 MICROGRAM, 2 TIMES/WK
     Route: 065
     Dates: start: 20180706, end: 20180716
  12. ROCALTROL [Concomitant]
     Active Substance: CALCITRIOL
     Dosage: 0.5 MICROGRAM, 3 TIMES/WK
     Route: 065
     Dates: start: 20190705, end: 20191216
  13. MIRCERA [Concomitant]
     Active Substance: METHOXY POLYETHYLENE GLYCOL-EPOETIN BETA
     Dosage: 50 MUG, EVERYDAY
     Route: 065
     Dates: start: 20181114, end: 20181114
  14. MIRCERA [Concomitant]
     Active Substance: METHOXY POLYETHYLENE GLYCOL-EPOETIN BETA
     Dosage: 200 MUG, Q4W
     Route: 065
     Dates: start: 20190408, end: 20190812
  15. NESP [Concomitant]
     Active Substance: DARBEPOETIN ALFA
     Dosage: 60 MUG, QW
     Route: 065
     Dates: start: 20180521, end: 20180528
  16. ROCALTROL [Concomitant]
     Active Substance: CALCITRIOL
     Dosage: 1.0 MUG, QW
     Route: 065
     Dates: start: 20180711, end: 20180713
  17. ROCALTROL [Concomitant]
     Active Substance: CALCITRIOL
     Dosage: 0.5 MICROGRAM, 2 TIMES/WK
     Route: 065
     Dates: start: 20181022, end: 20190218
  18. FOSRENOL [Concomitant]
     Active Substance: LANTHANUM CARBONATE
     Dosage: 500 MG, EVERYDAY
     Route: 048
     Dates: start: 20180523, end: 20181021
  19. FOSRENOL [Concomitant]
     Active Substance: LANTHANUM CARBONATE
     Dosage: 750 MG, EVERYDAY
     Route: 048
     Dates: start: 20181022
  20. MIRCERA [Concomitant]
     Active Substance: METHOXY POLYETHYLENE GLYCOL-EPOETIN BETA
     Dosage: 75 MUG, Q4W
     Route: 065
     Dates: start: 20180307, end: 20180307
  21. MIRCERA [Concomitant]
     Active Substance: METHOXY POLYETHYLENE GLYCOL-EPOETIN BETA
     Dosage: 25 MUG, EVERYDAY
     Route: 065
     Dates: start: 20181017, end: 20181017
  22. MIRCERA [Concomitant]
     Active Substance: METHOXY POLYETHYLENE GLYCOL-EPOETIN BETA
     Dosage: 200 MUG, Q4W
     Route: 065
     Dates: start: 20200113, end: 20200113
  23. MIRCERA [Concomitant]
     Active Substance: METHOXY POLYETHYLENE GLYCOL-EPOETIN BETA
     Dosage: 200 MUG, Q4W
     Route: 065
     Dates: start: 20200608
  24. FESIN [SACCHARATED IRON OXIDE] [Concomitant]
     Active Substance: IRON SUCROSE
     Dosage: 40 MILLIGRAM, QWK
     Route: 065
     Dates: start: 20180402, end: 20180528
  25. FESIN [SACCHARATED IRON OXIDE] [Concomitant]
     Active Substance: IRON SUCROSE
     Dosage: 20 MILLIGRAM, QWK
     Route: 065
     Dates: start: 20190925, end: 20191007
  26. INCREMIN [FERRIC PYROPHOSPHATE] [Concomitant]
     Active Substance: FERRIC PYROPHOSPHATE
     Dosage: 10 MILLILITER, QD
     Route: 048
     Dates: start: 20180924, end: 20190205
  27. PARSABIV [Suspect]
     Active Substance: ETELCALCETIDE HYDROCHLORIDE
     Indication: HYPERPARATHYROIDISM SECONDARY
     Dosage: 5 MILLIGRAM, 3 TIMES/WK
     Route: 010
     Dates: start: 20180219, end: 20180307
  28. ROCALTROL [Concomitant]
     Active Substance: CALCITRIOL
     Dosage: 0.5 MICROGRAM, 2 TIMES/WK
     Route: 065
     Dates: start: 20180302, end: 20180302
  29. ROCALTROL [Concomitant]
     Active Substance: CALCITRIOL
     Dosage: 0.5 MICROGRAM, 2 TIMES/WK
     Route: 065
     Dates: start: 20191218, end: 20200207
  30. MIRCERA [Concomitant]
     Active Substance: METHOXY POLYETHYLENE GLYCOL-EPOETIN BETA
     Dosage: 150 MUG, Q4W
     Route: 065
     Dates: start: 20180924, end: 20181105
  31. FESIN [SACCHARATED IRON OXIDE] [Concomitant]
     Active Substance: IRON SUCROSE
     Dosage: 40 MILLIGRAM, QWK
     Route: 065
     Dates: start: 20200504, end: 20200608
  32. PARSABIV [Suspect]
     Active Substance: ETELCALCETIDE HYDROCHLORIDE
     Dosage: 2.5 MILLIGRAM, 3 TIMES/WK
     Route: 010
     Dates: start: 20180309, end: 20180321
  33. NESP [Concomitant]
     Active Substance: DARBEPOETIN ALFA
     Dosage: 80 MUG, QW
     Route: 065
     Dates: start: 20180430, end: 20180514
  34. NESP [Concomitant]
     Active Substance: DARBEPOETIN ALFA
     Dosage: 40 MUG, QW
     Route: 065
     Dates: start: 20180618, end: 20180702
  35. NESP [Concomitant]
     Active Substance: DARBEPOETIN ALFA
     Dosage: 15 MUG, QW
     Route: 065
     Dates: start: 20180813, end: 20180820
  36. ROCALTROL [Concomitant]
     Active Substance: CALCITRIOL
     Dosage: 1.0 MUG, QW
     Route: 065
     Dates: start: 20180228, end: 20180228
  37. MIRCERA [Concomitant]
     Active Substance: METHOXY POLYETHYLENE GLYCOL-EPOETIN BETA
     Dosage: 175 MUG, EVERYDAY
     Route: 065
     Dates: start: 20181107, end: 20181107
  38. NESP [Concomitant]
     Active Substance: DARBEPOETIN ALFA
     Dosage: 50 MUG, QW
     Route: 065
     Dates: start: 20180604, end: 20180611
  39. ROCALTROL [Concomitant]
     Active Substance: CALCITRIOL
     Dosage: 0.5 MICROGRAM, QWK
     Route: 065
     Dates: start: 20190220, end: 20190703
  40. ROCALTROL [Concomitant]
     Active Substance: CALCITRIOL
     Dosage: 0.5 MICROGRAM, QWK
     Route: 065
     Dates: start: 20200515
  41. NESP [Concomitant]
     Active Substance: DARBEPOETIN ALFA
     Dosage: 30 MUG, QW
     Route: 065
     Dates: start: 20180709, end: 20180806
  42. ROCALTROL [Concomitant]
     Active Substance: CALCITRIOL
     Dosage: 1 MICROGRAM, 2 TIMES/WK
     Route: 065
     Dates: start: 20180305, end: 20180418
  43. ROCALTROL [Concomitant]
     Active Substance: CALCITRIOL
     Dosage: 0.5 MICROGRAM, 3 TIMES/WK
     Route: 065
     Dates: start: 20180718, end: 20181019
  44. MIRCERA [Concomitant]
     Active Substance: METHOXY POLYETHYLENE GLYCOL-EPOETIN BETA
     Dosage: 25 MUG, EVERYDAY
     Route: 065
     Dates: start: 20181119, end: 20181119
  45. ROCALTROL [Concomitant]
     Active Substance: CALCITRIOL
     Dosage: 0.5 MICROGRAM, QWK
     Route: 065
     Dates: start: 20180425, end: 20180704
  46. FOSRENOL [Concomitant]
     Active Substance: LANTHANUM CARBONATE
     Dosage: 250 MG, EVERYDAY
     Route: 048
     Dates: end: 20180522
  47. MIRCERA [Concomitant]
     Active Substance: METHOXY POLYETHYLENE GLYCOL-EPOETIN BETA
     Dosage: 225 MUG, Q4W
     Route: 065
     Dates: start: 20190311, end: 20190311
  48. MIRCERA [Concomitant]
     Active Substance: METHOXY POLYETHYLENE GLYCOL-EPOETIN BETA
     Dosage: 100 MUG, Q4W
     Route: 065
     Dates: start: 20200309, end: 20200413
  49. MIRCERA [Concomitant]
     Active Substance: METHOXY POLYETHYLENE GLYCOL-EPOETIN BETA
     Dosage: 150 MUG, Q4W
     Route: 065
     Dates: start: 20200504, end: 20200504
  50. FESIN [SACCHARATED IRON OXIDE] [Concomitant]
     Active Substance: IRON SUCROSE
     Dosage: 40 MILLIGRAM, QWK
     Route: 065
     Dates: start: 20190206, end: 20190408

REACTIONS (3)
  - Anaemia [Recovering/Resolving]
  - Shunt occlusion [Recovered/Resolved]
  - Shunt stenosis [Recovering/Resolving]

NARRATIVE: CASE EVENT DATE: 20190518
